FAERS Safety Report 4464719-9 (Version None)
Quarter: 2004Q4

REPORT INFORMATION
  Report Type: 
  Country: None (occurrence: None)
  Receive Date: 20041004
  Receipt Date: 20040921
  Transmission Date: 20050328
  Serious: Yes (Other)
  Sender: FDA-Public Use
  Company Number: US-JNJFOC-20040906935

PATIENT
  Sex: Female
  Weight: 60.78 kg

DRUGS (3)
  1. CISAPRIDE [Suspect]
     Route: 049
  2. CISAPRIDE [Suspect]
     Route: 049
  3. MIRALAX [Concomitant]
     Dosage: MIX 255 GR, BOTTLE WITH 6 FLUID OUNCES GATORADE
     Dates: start: 20040828, end: 20040828

REACTIONS (2)
  - ELECTROCARDIOGRAM T WAVE INVERSION [None]
  - SUPRAVENTRICULAR EXTRASYSTOLES [None]
